FAERS Safety Report 7789405-9 (Version None)
Quarter: 2011Q3

REPORT INFORMATION
  Report Type: 
  Country: None (occurrence: None)
  Receive Date: 20110930
  Receipt Date: 20110920
  Transmission Date: 20111222
  Serious: Yes (Hospitalization)
  Sender: FDA-Public Use
  Company Number: US-BAYER-2011-051688

PATIENT
  Age: 49 Year
  Sex: Female
  Weight: 58.05 kg

DRUGS (7)
  1. DROSPIRENONE AND ETHINYL ESTRADIOL [Suspect]
     Indication: ACNE
     Dosage: UNK
     Dates: start: 20060101, end: 20090101
  2. YASMIN [Suspect]
     Indication: ACNE
     Dosage: UNK
     Dates: start: 20060101, end: 20090101
  3. PROZAC [Concomitant]
     Route: 048
  4. KLONOPIN [Concomitant]
     Route: 048
  5. VICODIN [Concomitant]
     Route: 048
  6. CELEXA [Concomitant]
     Route: 048
  7. PRILOSEC [Concomitant]
     Route: 048

REACTIONS (6)
  - CHOLECYSTITIS CHRONIC [None]
  - CHOLELITHIASIS [None]
  - GALLBLADDER DISORDER [None]
  - INJURY [None]
  - DEPRESSION [None]
  - PAIN [None]
